FAERS Safety Report 8508122-0 (Version None)
Quarter: 2012Q3

REPORT INFORMATION
  Report Type: 
  Country: None (occurrence: None)
  Receive Date: 20120713
  Receipt Date: 20120706
  Transmission Date: 20120928
  Serious: Yes (Hospitalization)
  Sender: FDA-Public Use
  Company Number: DE-UCBSA-061227

PATIENT
  Sex: Female
  Weight: 65 kg

DRUGS (4)
  1. CIMZIA [Suspect]
     Indication: RHEUMATOID ARTHRITIS
     Dosage: NO OF DOSES RECEIVED: 38
     Route: 058
     Dates: start: 20100611, end: 20111203
  2. CIMZIA [Suspect]
     Dosage: NO OF DOSES :42
     Route: 058
     Dates: start: 20120115, end: 20120314
  3. ARCOXIA [Concomitant]
     Indication: RHEUMATOID ARTHRITIS
     Dates: start: 20050314
  4. ASPIRIN [Concomitant]
     Indication: RHEUMATOID ARTHRITIS
     Dates: start: 20010126

REACTIONS (5)
  - NEPHROLITHIASIS [None]
  - PYELONEPHRITIS [None]
  - SEPSIS [None]
  - THYROTOXIC CRISIS [None]
  - RADIOACTIVE IODINE THERAPY [None]
